FAERS Safety Report 20589392 (Version 1)
Quarter: 2022Q1

REPORT INFORMATION
  Report Type: Spontaneous
  Country: US (occurrence: None)
  Receive Date: 20220313
  Receipt Date: 20220313
  Transmission Date: 20220423
  Serious: No
  Sender: FDA-Public Use
  Company Number: None

PATIENT
  Age: 22 Year
  Sex: Male
  Weight: 60.33 kg

DRUGS (15)
  1. EVEROLIMUS [Suspect]
     Active Substance: EVEROLIMUS
     Indication: Brain neoplasm malignant
     Dosage: FREQUENCY : DAILY;?
     Route: 048
  2. EVEROLIMUS [Suspect]
     Active Substance: EVEROLIMUS
     Indication: Brain neoplasm malignant
     Dosage: FREQUENCY : DAILY;?
     Route: 048
  3. BENADRYL [Concomitant]
     Active Substance: DIPHENHYDRAMINE HYDROCHLORIDE
  4. VITAMINS [Concomitant]
     Active Substance: VITAMINS
  5. KEPPRA [Concomitant]
     Active Substance: LEVETIRACETAM
  6. FOLIC ACID [Concomitant]
     Active Substance: FOLIC ACID
  7. KLONOPIN [Concomitant]
     Active Substance: CLONAZEPAM
  8. LORAZEPAM [Concomitant]
     Active Substance: LORAZEPAM
  9. MELATONIN [Concomitant]
     Active Substance: MELATONIN
  10. MIRALAX [Concomitant]
     Active Substance: POLYETHYLENE GLYCOL 3350
  11. NAYZILAM [Concomitant]
     Active Substance: MIDAZOLAM
  12. TRIAMCINOLONE [Concomitant]
     Active Substance: TRIAMCINOLONE
  13. VIMPAT [Concomitant]
     Active Substance: LACOSAMIDE
  14. VITAMIN D3 [Concomitant]
     Active Substance: CHOLECALCIFEROL
  15. ZOFRAN [Concomitant]
     Active Substance: ONDANSETRON HYDROCHLORIDE

REACTIONS (1)
  - Seizure [None]

NARRATIVE: CASE EVENT DATE: 20220313
